FAERS Safety Report 5193064-1 (Version None)
Quarter: 2006Q4

REPORT INFORMATION
  Report Type: 
  Country: None (occurrence: None)
  Receive Date: 20061228
  Receipt Date: 20060330
  Transmission Date: 20070319
  Serious: No
  Sender: FDA-Public Use
  Company Number: US-GLAXOSMITHKLINE-A0599901A

PATIENT
  Sex: Male

DRUGS (4)
  1. AVODART [Suspect]
     Indication: BENIGN PROSTATIC HYPERPLASIA
     Route: 048
  2. DIABETES MEDICATION [Concomitant]
  3. BLOOD PRESSURE MED [Concomitant]
  4. UNKNOWN MEDICATION [Concomitant]

REACTIONS (2)
  - EJACULATION DISORDER [None]
  - SEXUAL DYSFUNCTION [None]
